FAERS Safety Report 16483442 (Version 2)
Quarter: 2019Q4

REPORT INFORMATION
  Report Type: Spontaneous
  Country: US (occurrence: US)
  Receive Date: 20190627
  Receipt Date: 20191104
  Transmission Date: 20200122
  Serious: Yes (Other)
  Sender: FDA-Public Use
  Company Number: US-BRISTOL-MYERS SQUIBB COMPANY-BMS-2019-062738

PATIENT
  Age: 17 Year

DRUGS (1)
  1. TRIAMCINOLONE ACETONIDE. [Suspect]
     Active Substance: TRIAMCINOLONE ACETONIDE
     Indication: THERMAL BURN
     Dosage: 2800 MILLIGRAM, OVER 2 MONTHS
     Route: 023

REACTIONS (2)
  - Cushing^s syndrome [Unknown]
  - Intentional product use issue [Unknown]
